FAERS Safety Report 24140073 (Version 1)
Quarter: 2024Q3

REPORT INFORMATION
  Report Type: Report from Study
  Country: US (occurrence: US)
  Receive Date: 20240726
  Receipt Date: 20240726
  Transmission Date: 20241016
  Serious: Yes (Other)
  Sender: UCB
  Company Number: US-UCBSA-2024037364

PATIENT
  Age: 32 Year
  Sex: Female

DRUGS (1)
  1. ZILUCOPLAN [Suspect]
     Active Substance: ZILUCOPLAN
     Indication: Myasthenia gravis
     Dosage: UNK

REACTIONS (8)
  - Choking [Recovering/Resolving]
  - Upper respiratory tract infection [Recovering/Resolving]
  - Pharyngeal mass [Recovering/Resolving]
  - Infection [Recovering/Resolving]
  - Dry throat [Recovering/Resolving]
  - Ageusia [Recovering/Resolving]
  - Oxygen saturation decreased [Recovering/Resolving]
  - SARS-CoV-2 test negative [Unknown]

NARRATIVE: CASE EVENT DATE: 20240711
